FAERS Safety Report 25682572 (Version 1)
Quarter: 2025Q3

REPORT INFORMATION
  Report Type: Spontaneous
  Country: EU (occurrence: EU)
  Receive Date: 20250814
  Receipt Date: 20250814
  Transmission Date: 20251020
  Serious: No
  Sender: ABBVIE
  Company Number: EU-ABBVIE-6211376

PATIENT

DRUGS (1)
  1. OZURDEX [Suspect]
     Active Substance: DEXAMETHASONE
     Indication: Product used for unknown indication
     Route: 031

REACTIONS (3)
  - Device issue [Unknown]
  - Device physical property issue [Unknown]
  - Musculoskeletal stiffness [Unknown]
